FAERS Safety Report 6650281-9 (Version None)
Quarter: 2010Q1

REPORT INFORMATION
  Report Type: 
  Country: None (occurrence: None)
  Receive Date: 20100325
  Receipt Date: 20100318
  Transmission Date: 20100710
  Serious: Yes (Hospitalization)
  Sender: FDA-Public Use
  Company Number: FR-ASTRAZENECA-2010SE12067

PATIENT
  Age: 31779 Day
  Sex: Female

DRUGS (5)
  1. NEXIUM [Suspect]
     Route: 042
     Dates: start: 20100127, end: 20100209
  2. VANCOMYCIN SANDOZ [Suspect]
     Route: 042
     Dates: start: 20100118, end: 20100209
  3. CORDARONE [Concomitant]
     Dates: end: 20100212
  4. TEMERIT [Concomitant]
     Dates: end: 20100209
  5. ZOVIRAX [Concomitant]
     Dates: end: 20100209

REACTIONS (1)
  - DERMATITIS BULLOUS [None]
